FAERS Safety Report 9492777 (Version 1)
Quarter: 2013Q3

REPORT INFORMATION
  Report Type: Spontaneous
  Country: GB (occurrence: GB)
  Receive Date: 20130830
  Receipt Date: 20130830
  Transmission Date: 20140515
  Serious: Yes (Hospitalization)
  Sender: FDA-Public Use
  Company Number: GB-ROCHE-1267259

PATIENT
  Age: 49 Year
  Sex: Female
  Weight: 97.1 kg

DRUGS (3)
  1. VEMURAFENIB [Suspect]
     Indication: METASTATIC MALIGNANT MELANOMA
     Route: 048
     Dates: start: 20130718, end: 20130807
  2. CYCLIZINE HYDROCHLORIDE [Concomitant]
  3. DOMPERIDONE MALEATE [Concomitant]

REACTIONS (10)
  - Blister [Unknown]
  - Rash generalised [Unknown]
  - Inflammation [Unknown]
  - Rash pruritic [Unknown]
  - Rash erythematous [Unknown]
  - Oropharyngeal pain [Unknown]
  - Stevens-Johnson syndrome [Not Recovered/Not Resolved]
  - Odynophagia [Unknown]
  - Throat tightness [Unknown]
  - Mouth ulceration [Unknown]
